FAERS Safety Report 8198553-3 (Version None)
Quarter: 2012Q1

REPORT INFORMATION
  Report Type: 
  Country: None (occurrence: None)
  Receive Date: 20120309
  Receipt Date: 20120106
  Transmission Date: 20120608
  Serious: No
  Sender: FDA-Public Use
  Company Number: US-AMGEN-USASP2011066506

PATIENT
  Sex: Female
  Weight: 60.771 kg

DRUGS (12)
  1. SINGULAIR [Concomitant]
     Dosage: 10 MG, QD
  2. CALCITRIOL [Concomitant]
     Dosage: 0.25 MUG, QD
  3. POTASSIUM CITRATE [Concomitant]
     Dosage: 40 MEQ, QD
  4. ASMANEX TWISTHALER [Concomitant]
     Dosage: 220 MUG, QD
  5. COMBIVENT [Concomitant]
     Dosage: UNK UNK, PRN
  6. MULTI-VITAMINS [Concomitant]
     Dosage: UNK UNK, QD
  7. FERROUS SULFATE TAB [Concomitant]
     Dosage: UNK UNK, QD
  8. PROLIA [Suspect]
     Indication: OSTEOPOROSIS
     Dosage: 60 MG, Q6MO
     Route: 058
     Dates: start: 20111014, end: 20111014
  9. PROLIA [Suspect]
     Dates: start: 20110101
  10. CALCIUM ACETATE [Concomitant]
     Dosage: 667 MG, BID
  11. SODIUM BICARBONATE [Concomitant]
     Dosage: 650 MG, QD
  12. IMODIUM [Concomitant]
     Dosage: UNK UNK, PRN

REACTIONS (3)
  - HYPOCALCAEMIA [None]
  - MUSCLE SPASMS [None]
  - PARAESTHESIA [None]
